FAERS Safety Report 8004892-9 (Version None)
Quarter: 2011Q4

REPORT INFORMATION
  Report Type: 
  Country: None (occurrence: None)
  Receive Date: 20111223
  Receipt Date: 20111223
  Transmission Date: 20120403
  Serious: Yes (Hospitalization, Other)
  Sender: FDA-Public Use
  Company Number: None

PATIENT
  Age: 61 Year
  Sex: Female
  Weight: 72.574 kg

DRUGS (2)
  1. LIPITOR [Suspect]
     Indication: BLOOD CHOLESTEROL INCREASED
     Dosage: 80MG
     Route: 048
  2. LIPITOR [Concomitant]
     Dosage: 40 MG
     Route: 048

REACTIONS (7)
  - ABDOMINAL PAIN [None]
  - MUSCLE SPASMS [None]
  - HEADACHE [None]
  - IMPAIRED GASTRIC EMPTYING [None]
  - HEPATITIS [None]
  - VERTIGO [None]
  - GALLBLADDER DISORDER [None]
